FAERS Safety Report 8237798-0 (Version None)
Quarter: 2012Q1

REPORT INFORMATION
  Report Type: 
  Country: None (occurrence: None)
  Receive Date: 20120327
  Receipt Date: 20120322
  Transmission Date: 20120608
  Serious: Yes (Hospitalization)
  Sender: FDA-Public Use
  Company Number: JP-BAYER-2011-106760

PATIENT
  Age: 78 Year
  Sex: Female
  Weight: 46 kg

DRUGS (5)
  1. LISINOPRIL [Suspect]
     Dosage: DAILY DOSE 1 DF
     Route: 048
     Dates: start: 20101012
  2. AMITRIPTYLINE HCL [Suspect]
     Dosage: DAILY DOSE 1 DF
     Route: 048
     Dates: end: 20111031
  3. ASPIRIN [Suspect]
     Indication: ANGINA PECTORIS
     Dosage: 100 MG, QD
     Route: 048
     Dates: start: 20080901, end: 20111031
  4. LIPITOR [Suspect]
     Dosage: DAILY DOSE 10 MG
     Route: 048
     Dates: start: 20100926
  5. NIKORANMART [Suspect]
     Dosage: DAILY DOSE 3 DF
     Route: 048
     Dates: start: 20100926

REACTIONS (1)
  - LIVER DISORDER [None]
